FAERS Safety Report 23872317 (Version 2)
Quarter: 2024Q3

REPORT INFORMATION
  Report Type: Spontaneous
  Country: JP (occurrence: JP)
  Receive Date: 20240520
  Receipt Date: 20240726
  Transmission Date: 20241016
  Serious: Yes (Death, Life-Threatening)
  Sender: ROCHE
  Company Number: JP-CHUGAI-2024012374

PATIENT
  Age: 9 Decade
  Sex: Male
  Weight: 59.8 kg

DRUGS (7)
  1. TECENTRIQ [Suspect]
     Active Substance: ATEZOLIZUMAB
     Indication: Hepatocellular carcinoma
     Route: 065
     Dates: start: 20231120, end: 20240126
  2. AVASTIN [Suspect]
     Active Substance: BEVACIZUMAB
     Indication: Hepatocellular carcinoma
     Route: 065
     Dates: start: 20231120, end: 20240126
  3. PREDNISOLONE [Suspect]
     Active Substance: PREDNISOLONE
     Indication: Liver disorder
     Dosage: UNK
     Route: 065
     Dates: start: 20240216, end: 20240326
  4. VONOPRAZAN FUMARATE [Concomitant]
     Active Substance: VONOPRAZAN FUMARATE
     Dates: start: 20220517
  5. EDOXABAN TOSYLATE [Concomitant]
     Active Substance: EDOXABAN TOSYLATE
     Dates: start: 20220517, end: 20240307
  6. AMINOLEBAN EN [ALANINE;ARGININE HYDROCHLORIDE;GLYCINE;ISOLEUCINE;METHI [Concomitant]
     Dates: start: 20231024, end: 20240216
  7. AMLODIPINE BESYLATE [Concomitant]
     Active Substance: AMLODIPINE BESYLATE
     Route: 048
     Dates: start: 20231123

REACTIONS (6)
  - Hepatic failure [Fatal]
  - Hepatic function abnormal [Fatal]
  - Immune thrombocytopenia [Unknown]
  - Platelet count decreased [Recovering/Resolving]
  - Cellulitis [Unknown]
  - Hepatocellular carcinoma [Fatal]

NARRATIVE: CASE EVENT DATE: 20240307
